FAERS Safety Report 9769963 (Version 1)
Quarter: 2013Q4

REPORT INFORMATION
  Report Type: Spontaneous
  Country: US (occurrence: US)
  Receive Date: 20131218
  Receipt Date: 20131218
  Transmission Date: 20140711
  Serious: No
  Sender: FDA-Public Use
  Company Number: US-VERTEX PHARMACEUTICALS INC-AE-2011-001001

PATIENT
  Age: 55 Year
  Sex: Male
  Weight: 90 kg

DRUGS (11)
  1. INCIVEK [Suspect]
     Indication: HEPATITIS C
     Route: 048
     Dates: start: 20110813
  2. PEGASYS [Concomitant]
     Indication: HEPATITIS C
     Route: 058
     Dates: start: 20110813
  3. COPEGUS [Concomitant]
     Indication: HEPATITIS C
     Route: 048
     Dates: start: 20110813
  4. NEXIUM [Concomitant]
     Route: 048
     Dates: start: 2007
  5. LISINOPRIL [Concomitant]
     Indication: HYPERTENSION
     Route: 048
     Dates: start: 2008
  6. NORVASC [Concomitant]
     Indication: HYPERTENSION
     Route: 048
     Dates: start: 2008
  7. REPREXAIN (VICOPROFEN) [Concomitant]
     Indication: NECK PAIN
     Dates: start: 2011
  8. PLAVIX [Concomitant]
     Route: 048
  9. PREPARATION H [Concomitant]
     Route: 061
  10. MINERAL OIL [Concomitant]
     Indication: CONSTIPATION
     Route: 048
  11. CYCLOBENZAPRINE (FLEXERIL) [Concomitant]
     Indication: NECK PAIN
     Dates: start: 2011

REACTIONS (2)
  - Depressed mood [Not Recovered/Not Resolved]
  - Decreased appetite [Not Recovered/Not Resolved]
